FAERS Safety Report 15464771 (Version 2)
Quarter: 2018Q4

REPORT INFORMATION
  Report Type: Spontaneous
  Country: US (occurrence: US)
  Receive Date: 20181004
  Receipt Date: 20181010
  Transmission Date: 20190204
  Serious: No
  Sender: FDA-Public Use
  Company Number: US-PFIZER INC-2018335907

PATIENT
  Age: 75 Year
  Sex: Female

DRUGS (4)
  1. METHOTREXATE SODIUM. [Suspect]
     Active Substance: METHOTREXATE SODIUM
     Indication: PAIN
  2. METHOTREXATE SODIUM. [Suspect]
     Active Substance: METHOTREXATE SODIUM
     Indication: SWELLING
  3. METHOTREXATE SODIUM. [Suspect]
     Active Substance: METHOTREXATE SODIUM
     Indication: RHEUMATOID ARTHRITIS
     Dosage: 0.5 ML, WEEKLY
     Route: 058
     Dates: start: 20180704, end: 2018
  4. METHOTREXATE SODIUM. [Suspect]
     Active Substance: METHOTREXATE SODIUM
     Indication: RED BLOOD CELL SEDIMENTATION RATE INCREASED
     Dosage: 10 UG, UNK (((ILLEGIBLE) 1/2 (ILLEGIBLE) 1 WEEK) )
     Route: 058
     Dates: start: 2018, end: 2018

REACTIONS (4)
  - Incorrect dose administered [Unknown]
  - Oxygen saturation decreased [Recovered/Resolved]
  - Product container issue [Unknown]
  - Product use issue [Unknown]

NARRATIVE: CASE EVENT DATE: 2018
